FAERS Safety Report 23519685 (Version 1)
Quarter: 2024Q1

REPORT INFORMATION
  Report Type: Spontaneous
  Country: CA (occurrence: CA)
  Receive Date: 20240213
  Receipt Date: 20240213
  Transmission Date: 20240410
  Serious: Yes (Other)
  Sender: FDA-Public Use
  Company Number: CA-JNJFOC-20240223456

PATIENT
  Age: 32 Year
  Sex: Female

DRUGS (2)
  1. REMICADE [Suspect]
     Active Substance: INFLIXIMAB
     Indication: Caesarean section
     Route: 041
  2. XARELTO [Suspect]
     Active Substance: RIVAROXABAN
     Indication: Product used for unknown indication
     Route: 065

REACTIONS (8)
  - Caesarean section [Recovering/Resolving]
  - Female sterilisation [Recovering/Resolving]
  - Pallor [Recovering/Resolving]
  - Procedural haemorrhage [Recovering/Resolving]
  - Fatigue [Recovering/Resolving]
  - Rash macular [Recovering/Resolving]
  - Exposure during pregnancy [Recovered/Resolved]
  - Off label use [Unknown]
